FAERS Safety Report 6986132-2 (Version None)
Quarter: 2010Q3

REPORT INFORMATION
  Report Type: 
  Country: None (occurrence: None)
  Receive Date: 20100910
  Receipt Date: 20100826
  Transmission Date: 20110219
  Serious: Yes (Other)
  Sender: FDA-Public Use
  Company Number: PHHY2010JP56873

PATIENT
  Age: 67 Year
  Sex: Male

DRUGS (2)
  1. VISUDYNE [Suspect]
     Indication: MACULAR DEGENERATION
     Dates: start: 20080101, end: 20080101
  2. VISUDYNE [Suspect]
     Indication: MACULAR DEGENERATION

REACTIONS (2)
  - BLINDNESS UNILATERAL [None]
  - RETINAL TEAR [None]
